FAERS Safety Report 25361695 (Version 1)
Quarter: 2025Q2

REPORT INFORMATION
  Report Type: Spontaneous
  Country: US (occurrence: US)
  Receive Date: 20250527
  Receipt Date: 20250527
  Transmission Date: 20250716
  Serious: No
  Sender: ALCON
  Company Number: US-ALCON LABORATORIES-ALC2024US004713

PATIENT
  Sex: Female

DRUGS (2)
  1. SIMBRINZA [Suspect]
     Active Substance: BRIMONIDINE TARTRATE\BRINZOLAMIDE
     Indication: Product used for unknown indication
     Route: 047
     Dates: start: 20240807, end: 202409
  2. SIMBRINZA [Suspect]
     Active Substance: BRIMONIDINE TARTRATE\BRINZOLAMIDE
     Route: 047
     Dates: start: 20241014

REACTIONS (6)
  - Product use issue [Unknown]
  - Product dose omission issue [Unknown]
  - Intraocular pressure increased [Unknown]
  - Product delivery mechanism issue [Unknown]
  - Exposure via skin contact [Unknown]
  - Product packaging quantity issue [Unknown]
